FAERS Safety Report 8723770 (Version 2)
Quarter: 2013Q4

REPORT INFORMATION
  Report Type: Spontaneous
  Country: US (occurrence: US)
  Receive Date: 20120815
  Receipt Date: 20131031
  Transmission Date: 20140711
  Serious: No
  Sender: FDA-Public Use
  Company Number: US-009507513-2012SP035928

PATIENT
  Sex: Female
  Weight: 123.38 kg

DRUGS (5)
  1. IMPLANON [Suspect]
     Indication: CONTRACEPTION
     Dates: start: 201002, end: 201010
  2. IMPLANON [Suspect]
     Dates: start: 201109
  3. CLONAZEPAM [Concomitant]
     Indication: PRODUCT USED FOR UNKNOWN INDICATION
  4. LAMICTAL [Concomitant]
     Indication: PRODUCT USED FOR UNKNOWN INDICATION
  5. ZOLOFT [Concomitant]
     Indication: PRODUCT USED FOR UNKNOWN INDICATION

REACTIONS (2)
  - Infertility female [Not Recovered/Not Resolved]
  - Weight increased [Unknown]
